FAERS Safety Report 4687415-1 (Version None)
Quarter: 2005Q2

REPORT INFORMATION
  Report Type: 
  Country: None (occurrence: None)
  Receive Date: 20050610
  Receipt Date: 20020225
  Transmission Date: 20051028
  Serious: Yes (Hospitalization)
  Sender: FDA-Public Use
  Company Number: JP-SOLVAY-00305001812

PATIENT
  Age: 6980 Day
  Sex: Male
  Weight: 52.5 kg

DRUGS (7)
  1. CREON [Suspect]
     Indication: CYSTIC FIBROSIS PANCREATIC
     Dosage: DAILY DOSE:  UNKNOWN
     Route: 065
     Dates: start: 19961003
  2. CREON [Suspect]
     Dosage: DAILY DOSE: 2.88 GRAM(S)
     Route: 048
     Dates: start: 19961126, end: 19961202
  3. CREON [Suspect]
     Dosage: DAILY DOSE: 5.76 GRAM(S)
     Route: 048
     Dates: start: 19961203, end: 19961209
  4. CREON [Suspect]
     Dosage: DAILY DOSE: 8.01 GRAM(S)
     Route: 048
     Dates: start: 19961210, end: 19961216
  5. CREON [Suspect]
     Dosage: DAILY DOSE: 5.76 GRAM(S)
     Route: 048
     Dates: start: 19961217, end: 19961230
  6. CREON [Suspect]
     Dosage: DAILY DOSE: 6 GRAM(S)
     Route: 048
     Dates: start: 19961231, end: 20001113
  7. CREON [Suspect]
     Dosage: DAILY DOSE:  UNKNOWN
     Route: 048
     Dates: start: 20001114, end: 20030105

REACTIONS (1)
  - BRONCHITIS ACUTE [None]
